FAERS Safety Report 6437230-3 (Version None)
Quarter: 2009Q4

REPORT INFORMATION
  Report Type: 
  Country: None (occurrence: None)
  Receive Date: 20091112
  Receipt Date: 20091029
  Transmission Date: 20100525
  Serious: Yes (Other)
  Sender: FDA-Public Use
  Company Number: US-BAYER-200932431NA

PATIENT
  Age: 43 Year
  Sex: Female
  Weight: 98 kg

DRUGS (1)
  1. MIRENA [Suspect]
     Indication: MENSTRUATION IRREGULAR
     Dosage: CONTINUOUS
     Route: 015
     Dates: start: 20090101

REACTIONS (2)
  - BILIARY COLIC [None]
  - DYSPEPSIA [None]
